FAERS Safety Report 8573084-7 (Version None)
Quarter: 2012Q3

REPORT INFORMATION
  Report Type: 
  Country: None (occurrence: None)
  Receive Date: 20120806
  Receipt Date: 20120724
  Transmission Date: 20120928
  Serious: Yes (Death, Hospitalization)
  Sender: FDA-Public Use
  Company Number: US-ACTELION-A-US2012-69272

PATIENT
  Age: 66 Year
  Sex: Male

DRUGS (7)
  1. EPOPROSTENOL SODIUM [Suspect]
     Dosage: 15 NG/KG, PER MIN
     Route: 042
     Dates: start: 20120515
  2. SPIRONOLACTONE [Concomitant]
  3. ADCIRCA [Concomitant]
  4. ASPIRIN [Concomitant]
  5. FUROSEMIDE [Concomitant]
  6. EPOPROSTENOL SODIUM [Suspect]
     Indication: PULMONARY ARTERIAL HYPERTENSION
     Dosage: 8 NG/KG, PER MIN
     Route: 042
     Dates: start: 20120515
  7. TRACLEER [Concomitant]
     Indication: PULMONARY ARTERIAL HYPERTENSION
     Dosage: UNK
     Route: 048

REACTIONS (3)
  - WEIGHT INCREASED [None]
  - DEATH [None]
  - FLUID OVERLOAD [None]
